FAERS Safety Report 7219580-6 (Version None)
Quarter: 2011Q1

REPORT INFORMATION
  Report Type: 
  Country: None (occurrence: None)
  Receive Date: 20110111
  Receipt Date: 20101230
  Transmission Date: 20110831
  Serious: Yes (Death, Hospitalization)
  Sender: FDA-Public Use
  Company Number: JP-GENZYME-FLUD-1000617

PATIENT
  Sex: Female
  Weight: 54 kg

DRUGS (18)
  1. METHYLPREDNISOLONE SODIUM SUCCINATE [Concomitant]
     Indication: PREMEDICATION
     Dosage: UNK
     Route: 065
     Dates: start: 20100406
  2. THYMOGLOBULIN [Suspect]
     Dosage: 2.5 MG, ONCE
     Route: 042
     Dates: start: 20100406, end: 20100406
  3. ESTAZOLAM [Concomitant]
     Indication: INSOMNIA
     Dosage: UNK
     Route: 065
     Dates: start: 20100417
  4. THYMOGLOBULIN [Suspect]
     Indication: PREMEDICATION
     Dosage: 125 MG, QD
     Route: 042
     Dates: start: 20100406, end: 20100406
  5. ZOLPIDEM [Concomitant]
     Indication: INSOMNIA
     Dosage: UNK
     Route: 065
     Dates: start: 20100401
  6. LANSOPRAZOLE [Concomitant]
     Indication: REFLUX OESOPHAGITIS
     Dosage: UNK
     Route: 065
     Dates: start: 20100401
  7. PANTETHINE [Concomitant]
     Indication: CONSTIPATION
     Dosage: UNK
     Route: 065
     Dates: start: 20100401
  8. ACYCLOVIR [Concomitant]
     Indication: ANTIVIRAL PROPHYLAXIS
     Dosage: UNK
     Route: 065
     Dates: start: 20100414, end: 20100514
  9. BUSULFAN [Concomitant]
     Indication: NON-HODGKIN'S LYMPHOMA
     Dosage: UNK
     Route: 065
     Dates: start: 20100404, end: 20100405
  10. METHYLPREDNISOLONE SODIUM SUCCINATE [Concomitant]
     Indication: PROPHYLAXIS AGAINST GRAFT VERSUS HOST DISEASE
     Dosage: UNK
     Route: 065
     Dates: start: 20100410, end: 20100521
  11. TACROLIMUS [Concomitant]
     Indication: PROPHYLAXIS AGAINST GRAFT VERSUS HOST DISEASE
     Dosage: UNK
     Route: 065
     Dates: start: 20100408, end: 20100510
  12. SULFAMETHOXAZOLE W [Concomitant]
     Indication: ANTIFUNGAL PROPHYLAXIS
     Dosage: UNK
     Route: 065
     Dates: start: 20100401
  13. FILGRASTIM [Concomitant]
     Indication: NEUTROPENIA
     Dosage: UNK
     Route: 065
     Dates: start: 20100412, end: 20100418
  14. FLUDARA [Suspect]
     Indication: NON-HODGKIN'S LYMPHOMA
     Dosage: UNK
     Route: 065
     Dates: start: 20100402, end: 20100407
  15. MELPHALAN [Concomitant]
     Indication: NON-HODGKIN'S LYMPHOMA
     Dosage: UNK
     Route: 065
     Dates: start: 20100406, end: 20100407
  16. ITRACONAZOLE [Concomitant]
     Indication: ANTIFUNGAL PROPHYLAXIS
     Dosage: UNK
     Route: 065
     Dates: start: 20100402
  17. GRANISETRON HYDROCHLORIDE [Concomitant]
     Indication: PROPHYLAXIS OF NAUSEA AND VOMITING
     Dosage: UNK
     Route: 065
     Dates: start: 20100402, end: 20100407
  18. ETOPOSIDE [Concomitant]
     Indication: NON-HODGKIN'S LYMPHOMA
     Dosage: UNK
     Route: 065
     Dates: start: 20100402, end: 20100403

REACTIONS (4)
  - PNEUMONIA [None]
  - ADENOVIRAL HAEMORRHAGIC CYSTITIS [None]
  - INFECTION [None]
  - CYTOMEGALOVIRUS TEST POSITIVE [None]
